FAERS Safety Report 15482855 (Version 1)
Quarter: 2018Q4

REPORT INFORMATION
  Report Type: Spontaneous
  Country: US (occurrence: US)
  Receive Date: 20181003
  Receipt Date: 20181003
  Transmission Date: 20190205
  Serious: Yes (Other)
  Sender: FDA-Public Use
  Company Number: None

PATIENT
  Age: 78 Year
  Sex: Female
  Weight: 99 kg

DRUGS (1)
  1. LISINOPRIL GENERIC EQUIVALENT FOR ZESTRIL [Suspect]
     Active Substance: LISINOPRIL
     Indication: HYPERTENSION
     Dosage: ?          QUANTITY:90 CAPSULE(S);?
     Route: 048
     Dates: start: 20170104, end: 20180920

REACTIONS (7)
  - Oral mucosal blistering [None]
  - Dyspnoea [None]
  - Dysphonia [None]
  - Somnolence [None]
  - Pruritus [None]
  - Swelling face [None]
  - Urticaria [None]

NARRATIVE: CASE EVENT DATE: 20180917
